FAERS Safety Report 17136308 (Version 1)
Quarter: 2019Q4

REPORT INFORMATION
  Report Type: Spontaneous
  Country: DE (occurrence: DE)
  Receive Date: 20191210
  Receipt Date: 20191210
  Transmission Date: 20200122
  Serious: No
  Sender: FDA-Public Use
  Company Number: DE-LEXICON PHARMACEUTICALS, INC-19-1606-01078

PATIENT

DRUGS (2)
  1. XERMELO [Suspect]
     Active Substance: TELOTRISTAT ETHYL
     Indication: OFF LABEL USE
  2. XERMELO [Suspect]
     Active Substance: TELOTRISTAT ETHYL
     Indication: NEOPLASM OF THYMUS
     Route: 065

REACTIONS (2)
  - Off label use [Unknown]
  - Drug ineffective for unapproved indication [Unknown]
